FAERS Safety Report 20053895 (Version 1)
Quarter: 2021Q4

REPORT INFORMATION
  Report Type: Spontaneous
  Country: US (occurrence: US)
  Receive Date: 20211110
  Receipt Date: 20211110
  Transmission Date: 20220303
  Serious: Yes (Hospitalization, Other)
  Sender: FDA-Public Use
  Company Number: US-PFIZER INC-202101487470

PATIENT
  Age: 58 Year
  Sex: Female
  Weight: 54.43 kg

DRUGS (3)
  1. XANAX [Suspect]
     Active Substance: ALPRAZOLAM
     Indication: Anxiety
     Dosage: 2 MG, 2X/DAY
     Route: 048
     Dates: start: 2020
  2. XANAX [Suspect]
     Active Substance: ALPRAZOLAM
     Indication: Depression
     Dosage: 1 MG, 2X/DAY
     Route: 048
  3. XANAX [Suspect]
     Active Substance: ALPRAZOLAM
     Indication: Stress

REACTIONS (14)
  - Cerebrovascular accident [Unknown]
  - Cerebral haemorrhage [Unknown]
  - Thrombosis [Recovered/Resolved with Sequelae]
  - Intracranial aneurysm [Unknown]
  - Drug dependence [Unknown]
  - Facial bones fracture [Unknown]
  - Suicidal behaviour [Recovered/Resolved]
  - Memory impairment [Unknown]
  - Fall [Unknown]
  - Gait disturbance [Unknown]
  - Dysgraphia [Unknown]
  - Weight decreased [Recovering/Resolving]
  - Balance disorder [Unknown]
  - Dysphemia [Unknown]

NARRATIVE: CASE EVENT DATE: 20201222
